FAERS Safety Report 4691784-6 (Version None)
Quarter: 2005Q2

REPORT INFORMATION
  Report Type: 
  Country: None (occurrence: None)
  Receive Date: 20050614
  Receipt Date: 20040412
  Transmission Date: 20051028
  Serious: Yes (Hospitalization)
  Sender: FDA-Public Use
  Company Number: WSDF_00393

PATIENT
  Age: 5 Year
  Sex: Female
  Weight: 18.2 kg

DRUGS (3)
  1. WINRHO SDF [Suspect]
     Indication: IDIOPATHIC THROMBOCYTOPENIC PURPURA
     Dates: start: 20040330, end: 20040330
  2. TYLENOL [Concomitant]
  3. BENADRYL [Concomitant]

REACTIONS (1)
  - HEADACHE [None]
